FAERS Safety Report 7723837-X (Version None)
Quarter: 2011Q3

REPORT INFORMATION
  Report Type: 
  Country: None (occurrence: None)
  Receive Date: 20110829
  Receipt Date: 20110812
  Transmission Date: 20111222
  Serious: Yes (Death, Hospitalization)
  Sender: FDA-Public Use
  Company Number: US-2011-2014

PATIENT
  Age: 61 Year
  Sex: Male

DRUGS (12)
  1. TRIFLUOPERAZIN [Concomitant]
  2. HYDROXYZINE [Concomitant]
  3. WELLBUTRIN [Concomitant]
  4. NAVELBINE [Suspect]
     Indication: NON-SMALL CELL LUNG CANCER
     Dosage: 25 MG/M2 IV
     Route: 042
     Dates: start: 20110429
  5. MEGACE [Concomitant]
  6. ZINC [Concomitant]
  7. CISPLATIN [Suspect]
     Indication: NON-SMALL CELL LUNG CANCER
     Dosage: 80 MG/M2 IV
     Route: 042
     Dates: start: 20110428
  8. CETUXIMAB [Suspect]
     Indication: NON-SMALL CELL LUNG CANCER
     Dosage: 490 MG/M2 IV
     Route: 042
     Dates: start: 20110428
  9. OMEPRAZOLE [Concomitant]
  10. SERTRALINE HYDROCHLORIDE [Concomitant]
  11. BUPROPION HCL [Concomitant]
  12. NORMAX [Concomitant]

REACTIONS (23)
  - LEFT VENTRICULAR HYPERTROPHY [None]
  - HYPOMAGNESAEMIA [None]
  - GLUCOSE URINE PRESENT [None]
  - HYPOTENSION [None]
  - DYSPNOEA [None]
  - PALLOR [None]
  - PULSE ABSENT [None]
  - BLOOD POTASSIUM DECREASED [None]
  - NON-SMALL CELL LUNG CANCER STAGE IV [None]
  - RENAL FAILURE ACUTE [None]
  - HYPOPHAGIA [None]
  - FALL [None]
  - BLOOD CALCIUM DECREASED [None]
  - CYANOSIS [None]
  - BLOOD SODIUM DECREASED [None]
  - BACTERIAL TEST POSITIVE [None]
  - URINE KETONE BODY PRESENT [None]
  - DEHYDRATION [None]
  - NEOPLASM PROGRESSION [None]
  - CONFUSIONAL STATE [None]
  - NEPHROLITHIASIS [None]
  - VASCULAR CALCIFICATION [None]
  - DECREASED APPETITE [None]
